FAERS Safety Report 9645683 (Version 2)
Quarter: 2014Q1

REPORT INFORMATION
  Report Type: Spontaneous
  Country: IT (occurrence: IT)
  Receive Date: 20131025
  Receipt Date: 20140103
  Transmission Date: 20141002
  Serious: Yes (Hospitalization)
  Sender: FDA-Public Use
  Company Number: IT-ACTAVIS-2013-19207

PATIENT
  Age: 88 Year
  Sex: Female

DRUGS (4)
  1. IBUPROFEN (UNKNOWN) [Suspect]
     Indication: PAIN
     Dosage: 600 MG, DAILY
     Route: 048
     Dates: start: 20130925, end: 20131001
  2. SINTROM [Suspect]
     Indication: ATRIAL FIBRILLATION
     Dosage: 12 MG, 1/WEEK
     Route: 048
     Dates: start: 20131001
  3. DILTIAZEM HYDROCHLORIDE [Concomitant]
     Indication: PRODUCT USED FOR UNKNOWN INDICATION
     Dosage: 180 MG, UNK
     Route: 048
  4. ENALAPRIL [Concomitant]
     Indication: PRODUCT USED FOR UNKNOWN INDICATION
     Dosage: 5 MG, ORAL
     Route: 048

REACTIONS (2)
  - Anaemia macrocytic [Recovering/Resolving]
  - International normalised ratio increased [Recovering/Resolving]
